FAERS Safety Report 8863332 (Version 1)
Quarter: 2012Q4

REPORT INFORMATION
  Report Type: Report from Study
  Country: DE (occurrence: DE)
  Receive Date: 20121025
  Receipt Date: 20121025
  Transmission Date: 20130627
  Serious: Yes (Hospitalization)
  Sender: FDA-Public Use
  Company Number: DE-ROCHE-1036088

PATIENT
  Age: 71 Year
  Sex: Female
  Weight: 85 kg

DRUGS (8)
  1. CAPECITABINE [Suspect]
     Indication: BREAST CANCER
     Route: 048
     Dates: start: 20120103
  2. CAPECITABINE [Suspect]
     Dosage: dose reduced
     Route: 048
  3. BEVACIZUMAB [Suspect]
     Indication: BREAST CANCER
     Route: 042
     Dates: start: 20120103
  4. BELOC-ZOK MITE [Concomitant]
     Route: 065
     Dates: start: 20120202
  5. PENTALONG [Concomitant]
     Route: 065
     Dates: start: 20120202
  6. MIRTAZAPIN [Concomitant]
     Route: 065
     Dates: start: 20120202
  7. PANTOZOL [Concomitant]
     Route: 065
     Dates: start: 20120202
  8. ESIDRIX [Concomitant]
     Route: 065
     Dates: start: 20120202

REACTIONS (1)
  - Hypertensive crisis [Recovered/Resolved]
